FAERS Safety Report 9858683 (Version 4)
Quarter: 2014Q1

REPORT INFORMATION
  Report Type: Spontaneous
  Country: US (occurrence: None)
  Receive Date: 20140129
  Receipt Date: 20140304
  Transmission Date: 20141002
  Serious: Yes (Other)
  Sender: FDA-Public Use
  Company Number: AUR-APL-2014-00667

PATIENT
  Age: 58 Year
  Sex: 0

DRUGS (3)
  1. RAMIPRIL [Suspect]
     Indication: NEPHROTIC SYNDROME
     Dosage: 10 MG (10MG, 1 IN D), UNKNOWN
  2. RAMIPRIL [Suspect]
     Indication: OFF LABEL USE
     Dosage: 10 MG (10MG, 1 IN D), UNKNOWN
  3. PREDNISOLONE [Suspect]
     Indication: NEPHROTIC SYNDROME
     Route: 048

REACTIONS (2)
  - Drug resistance [None]
  - Off label use [None]
